FAERS Safety Report 11780652 (Version 3)
Quarter: 2019Q3

REPORT INFORMATION
  Report Type: Report from Study
  Country: CA (occurrence: CA)
  Receive Date: 20151126
  Receipt Date: 20190712
  Transmission Date: 20191004
  Serious: Yes (Other)
  Sender: FDA-Public Use
  Company Number: CA-ROCHE-1178092

PATIENT
  Age: 57 Year
  Sex: Male
  Weight: 88.9 kg

DRUGS (20)
  1. RITUXAN [Suspect]
     Active Substance: RITUXIMAB
     Indication: RHEUMATOID ARTHRITIS
     Dosage: UNKNOWN DOSE
     Route: 042
     Dates: start: 20080103
  2. ALENDRONATE [Concomitant]
     Active Substance: ALENDRONATE SODIUM
  3. METFORMIN [Concomitant]
     Active Substance: METFORMIN HYDROCHLORIDE
  4. DIPHENHYDRAMINE HCL [Concomitant]
     Active Substance: DIPHENHYDRAMINE HYDROCHLORIDE
     Indication: PREMEDICATION
     Route: 048
     Dates: start: 20091014
  5. LEFLUNOMIDE. [Concomitant]
     Active Substance: LEFLUNOMIDE
  6. SERTRALINE [Concomitant]
     Active Substance: SERTRALINE HYDROCHLORIDE
  7. ACETAMINOPHEN. [Concomitant]
     Active Substance: ACETAMINOPHEN
     Indication: PREMEDICATION
     Route: 048
     Dates: start: 20091014
  8. RAMIPRIL. [Concomitant]
     Active Substance: RAMIPRIL
  9. ASA [Concomitant]
     Active Substance: ASPIRIN
  10. HYDROCHLOROTHIAZIDE. [Concomitant]
     Active Substance: HYDROCHLOROTHIAZIDE
  11. PREDNISONE. [Concomitant]
     Active Substance: PREDNISONE
  12. SOLU-MEDROL [Concomitant]
     Active Substance: METHYLPREDNISOLONE SODIUM SUCCINATE
  13. M-ESLON [Concomitant]
     Active Substance: MORPHINE SULFATE
  14. METHYLPREDNISOLONE. [Concomitant]
     Active Substance: METHYLPREDNISOLONE
     Indication: PREMEDICATION
     Route: 042
     Dates: start: 20091014
  15. RITUXAN [Suspect]
     Active Substance: RITUXIMAB
     Dosage: LAST TITUXIMAB INFUSION ON 08/AUG/2013
     Route: 042
     Dates: start: 20091014
  16. RITUXAN [Suspect]
     Active Substance: RITUXIMAB
     Dosage: DAY 1 ONLY
     Route: 042
     Dates: start: 20150716
  17. ATORVASTATIN [Concomitant]
     Active Substance: ATORVASTATIN
  18. PANTOLOC [PANTOPRAZOLE] [Concomitant]
     Active Substance: PANTOPRAZOLE SODIUM
  19. BENADRYL [Concomitant]
     Active Substance: DIPHENHYDRAMINE HYDROCHLORIDE
     Indication: PREMEDICATION
  20. TYLENOL [Concomitant]
     Active Substance: ACETAMINOPHEN

REACTIONS (9)
  - Oxygen saturation decreased [Not Recovered/Not Resolved]
  - Arthritis [Not Recovered/Not Resolved]
  - Herpes zoster [Unknown]
  - Infusion related reaction [Unknown]
  - Ocular discomfort [Not Recovered/Not Resolved]
  - Hepatic fibrosis [Unknown]
  - Pain [Not Recovered/Not Resolved]
  - Heart rate increased [Not Recovered/Not Resolved]
  - Off label use [Unknown]

NARRATIVE: CASE EVENT DATE: 20130107
